FAERS Safety Report 26116495 (Version 2)
Quarter: 2025Q4

REPORT INFORMATION
  Report Type: Spontaneous
  Country: US (occurrence: US)
  Receive Date: 20251203
  Receipt Date: 20251218
  Transmission Date: 20260118
  Serious: Yes (Hospitalization)
  Sender: FENNEC PHARMACEUTICALS
  Company Number: US-FENNEC PHARMACEUTICALS, INC.-2025FEN00119

PATIENT
  Age: 64 Year
  Sex: Male

DRUGS (5)
  1. PEDMARK [Suspect]
     Active Substance: SODIUM THIOSULFATE
     Indication: Chemotherapy side effect prophylaxis
     Dosage: 45.6 G IV OVER 45 MINUTES, ON DAY 1 AND DAY 2 EVERY 28 DAYS
     Route: 042
     Dates: start: 20251117, end: 202511
  2. CISPLATIN [Concomitant]
     Active Substance: CISPLATIN
  3. DEXAMETHASONE [Concomitant]
     Active Substance: DEXAMETHASONE
  4. BENADRYL [Concomitant]
     Active Substance: DIPHENHYDRAMINE HYDROCHLORIDE
  5. ZOFRAN [Concomitant]
     Active Substance: ONDANSETRON HYDROCHLORIDE

REACTIONS (3)
  - Urosepsis [Unknown]
  - Nausea [Recovering/Resolving]
  - Off label use [Not Recovered/Not Resolved]

NARRATIVE: CASE EVENT DATE: 20251117
